FAERS Safety Report 7659181-9 (Version None)
Quarter: 2011Q3

REPORT INFORMATION
  Report Type: 
  Country: None (occurrence: None)
  Receive Date: 20110805
  Receipt Date: 20110728
  Transmission Date: 20111222
  Serious: Yes (Hospitalization)
  Sender: FDA-Public Use
  Company Number: AT-GLAXOSMITHKLINE-B0737190A

PATIENT
  Sex: Male

DRUGS (9)
  1. MABTHERA [Suspect]
     Indication: CHRONIC LYMPHOCYTIC LEUKAEMIA
     Dosage: 1142MG MONTHLY
     Route: 042
     Dates: start: 20110202
  2. LASIX [Concomitant]
     Dates: start: 20110216
  3. ENALAPRIL MALEATE AND HYDROCHLOROTHIAZIDE [Concomitant]
     Dates: start: 19910630, end: 20110316
  4. ALLOPURINOL [Concomitant]
     Dates: start: 20100815
  5. AMLODIPINE [Concomitant]
     Dates: start: 20101101, end: 20110316
  6. SYMBICORT [Concomitant]
     Dates: start: 20101101
  7. DESLORATADINE [Concomitant]
     Dates: start: 20101214
  8. CHLORAMBUCIL [Suspect]
     Indication: CHRONIC LYMPHOCYTIC LEUKAEMIA
     Dosage: 52MG EVERY TWO WEEKS
     Route: 048
     Dates: start: 20110202
  9. BACTRIM DS [Concomitant]
     Dates: start: 20110204

REACTIONS (4)
  - INFECTION [None]
  - CHRONIC OBSTRUCTIVE PULMONARY DISEASE [None]
  - ATRIAL FIBRILLATION [None]
  - RENAL FAILURE ACUTE [None]
